FAERS Safety Report 9481577 (Version 1)
Quarter: 2013Q3

REPORT INFORMATION
  Report Type: Spontaneous
  Country: US (occurrence: US)
  Receive Date: 20130828
  Receipt Date: 20130828
  Transmission Date: 20140515
  Serious: Yes (Hospitalization)
  Sender: FDA-Public Use
  Company Number: US-AMGEN-KDL177326

PATIENT
  Age: 40 Year
  Sex: Female

DRUGS (4)
  1. ENBREL [Suspect]
     Indication: RHEUMATOID ARTHRITIS
     Dosage: 25 MG, 2 TIMES/WK
     Route: 058
     Dates: start: 20041101
  2. ENBREL [Suspect]
     Indication: MIXED CONNECTIVE TISSUE DISEASE
  3. ENBREL [Suspect]
     Indication: SYSTEMIC LUPUS ERYTHEMATOSUS
  4. METHOTREXATE [Concomitant]
     Dosage: 25 MG, QWK
     Dates: start: 20041101

REACTIONS (13)
  - Intestinal perforation [Unknown]
  - Colitis ulcerative [Unknown]
  - Pleurisy [Unknown]
  - Pneumonia [Unknown]
  - Food poisoning [Unknown]
  - Muscular weakness [Not Recovered/Not Resolved]
  - Joint swelling [Not Recovered/Not Resolved]
  - Condition aggravated [Not Recovered/Not Resolved]
  - Arthralgia [Not Recovered/Not Resolved]
  - Condition aggravated [Not Recovered/Not Resolved]
  - Fall [Not Recovered/Not Resolved]
  - Urinary incontinence [Not Recovered/Not Resolved]
  - Alopecia [Unknown]
